FAERS Safety Report 16072015 (Version 2)
Quarter: 2019Q2

REPORT INFORMATION
  Report Type: Spontaneous
  Country: JP (occurrence: JP)
  Receive Date: 20190314
  Receipt Date: 20190419
  Transmission Date: 20190711
  Serious: Yes (Hospitalization)
  Sender: FDA-Public Use
  Company Number: JP-JNJFOC-20190317825

PATIENT
  Age: 79 Year
  Sex: Female
  Weight: 68 kg

DRUGS (7)
  1. ARTIST [Concomitant]
     Active Substance: CARVEDILOL
     Route: 048
  2. POLLAKISU [Concomitant]
     Active Substance: OXYBUTYNIN CHLORIDE
     Route: 048
  3. XARELTO [Suspect]
     Active Substance: RIVAROXABAN
     Indication: ATRIAL FIBRILLATION
     Route: 048
     Dates: start: 20140403
  4. ALLOPURINOL. [Concomitant]
     Active Substance: ALLOPURINOL
     Route: 048
  5. AMLODIPINE [Concomitant]
     Active Substance: AMLODIPINE BESYLATE
     Route: 048
  6. DIOVAN [Concomitant]
     Active Substance: VALSARTAN
     Route: 048
  7. OMEPRAL [Concomitant]
     Active Substance: OMEPRAZOLE
     Route: 048

REACTIONS (2)
  - Cerebellar ataxia [Unknown]
  - Embolic cerebral infarction [Recovered/Resolved with Sequelae]

NARRATIVE: CASE EVENT DATE: 20190226
